FAERS Safety Report 9975092 (Version 1)
Quarter: 2014Q1

REPORT INFORMATION
  Report Type: Report from Study
  Country: US (occurrence: US)
  Receive Date: 20140306
  Receipt Date: 20140306
  Transmission Date: 20141002
  Serious: No
  Sender: FDA-Public Use
  Company Number: US-ABBVIE-13P-163-1159835-00

PATIENT
  Age: 52 Year
  Sex: Male

DRUGS (7)
  1. HUMIRA [Suspect]
     Indication: COLITIS ULCERATIVE
     Dates: start: 20130626
  2. NEXIUM [Concomitant]
     Indication: GASTRIC ULCER
  3. SINGULAR [Concomitant]
     Indication: HYPERSENSITIVITY
  4. FIBERCON [Concomitant]
     Indication: COLITIS ULCERATIVE
     Dosage: WITH MEALS
  5. COLESTIPOL [Concomitant]
     Indication: PRODUCT USED FOR UNKNOWN INDICATION
  6. COLESTIPOL [Concomitant]
  7. SIMETHICONE [Concomitant]
     Indication: PRODUCT USED FOR UNKNOWN INDICATION

REACTIONS (2)
  - Gastric disorder [Not Recovered/Not Resolved]
  - Diarrhoea [Not Recovered/Not Resolved]
